FAERS Safety Report 14925355 (Version 2)
Quarter: 2018Q2

REPORT INFORMATION
  Report Type: Report from Study
  Country: US (occurrence: US)
  Receive Date: 20180522
  Receipt Date: 20180605
  Transmission Date: 20180711
  Serious: Yes (Hospitalization, Other)
  Sender: FDA-Public Use
  Company Number: US-MALLINCKRODT-T201801323

PATIENT
  Age: 42 Year
  Sex: Female

DRUGS (2)
  1. REPOSITORY CORTICOTROPIN INJECTION [Suspect]
     Active Substance: CORTICOTROPIN
     Dosage: UNK
     Route: 065
     Dates: start: 20170926
  2. REPOSITORY CORTICOTROPIN INJECTION [Suspect]
     Active Substance: CORTICOTROPIN
     Indication: SYSTEMIC LUPUS ERYTHEMATOSUS
     Dosage: 80 UNITS / 1 ML, EVERY DAY OR EVERY OTHER DAY
     Route: 058
     Dates: start: 20160518

REACTIONS (15)
  - Head injury [Unknown]
  - Pain [Unknown]
  - Lymphadenocyst [Recovering/Resolving]
  - Road traffic accident [Unknown]
  - Drug dose omission [Unknown]
  - Drug effect incomplete [Not Recovered/Not Resolved]
  - Hypopituitarism [Unknown]
  - Fatigue [Unknown]
  - Impaired healing [Unknown]
  - Lymphadenectomy [Unknown]
  - Squamous cell carcinoma [Unknown]
  - Epstein-Barr virus infection [Unknown]
  - Headache [Unknown]
  - Visual impairment [Unknown]
  - Night sweats [Not Recovered/Not Resolved]

NARRATIVE: CASE EVENT DATE: 20180420
